FAERS Safety Report 21958987 (Version 1)
Quarter: 2023Q1

REPORT INFORMATION
  Report Type: Spontaneous
  Country: US (occurrence: None)
  Receive Date: 20230203
  Receipt Date: 20230203
  Transmission Date: 20230418
  Serious: No
  Sender: FDA-Public Use
  Company Number: None

PATIENT
  Sex: Female

DRUGS (1)
  1. MAVYRET [Suspect]
     Active Substance: GLECAPREVIR\PIBRENTASVIR
     Dosage: OTHER QUANTITY : 100-40MG;?FREQUENCY : DAILY;?
     Route: 048
     Dates: start: 202301

REACTIONS (1)
  - Therapy interrupted [None]
